FAERS Safety Report 5822323-1 (Version None)
Quarter: 2008Q3

REPORT INFORMATION
  Report Type: 
  Country: None (occurrence: None)
  Receive Date: 20080723
  Receipt Date: 20080723
  Transmission Date: 20090109
  Serious: No
  Sender: FDA-Public Use
  Company Number: None

PATIENT
  Age: 60 Year
  Sex: Male
  Weight: 97.5234 kg

DRUGS (2)
  1. PACERONE [Suspect]
     Indication: ARRHYTHMIA
     Dosage: 200 MG ONCE DAILY
     Dates: start: 20080106, end: 20080616
  2. PACERONE [Suspect]
     Indication: ARRHYTHMIA
     Dosage: 200 MG TWICE DAILY

REACTIONS (2)
  - ATRIAL FIBRILLATION [None]
  - BLINDNESS [None]
